FAERS Safety Report 5842912-8 (Version None)
Quarter: 2008Q3

REPORT INFORMATION
  Report Type: 
  Country: None (occurrence: None)
  Receive Date: 20080813
  Receipt Date: 20080811
  Transmission Date: 20090109
  Serious: Yes (Hospitalization, Other)
  Sender: FDA-Public Use
  Company Number: FR-BRISTOL-MYERS SQUIBB COMPANY-14296495

PATIENT
  Age: 24 Year
  Sex: Male
  Weight: 139 kg

DRUGS (1)
  1. CORGARD [Suspect]
     Indication: VENTRICULAR TACHYCARDIA
     Dosage: 1 DOSAGEFORM = 28-40 PILLS/DAY,AFTER HOSPITALIZATION-80MG/DAY

REACTIONS (5)
  - ANXIETY [None]
  - BRADYCARDIA [None]
  - DRUG ABUSE [None]
  - PHOBIA [None]
  - SINUS ARRHYTHMIA [None]
